FAERS Safety Report 6915037-8 (Version None)
Quarter: 2010Q3

REPORT INFORMATION
  Report Type: 
  Country: None (occurrence: None)
  Receive Date: 20100804
  Receipt Date: 20100804
  Transmission Date: 20110219
  Serious: Yes (Hospitalization)
  Sender: FDA-Public Use
  Company Number: None

PATIENT
  Age: 78 Year
  Sex: Male

DRUGS (1)
  1. HYDRALAZINE HCL [Suspect]
     Dosage: 10 MG ONCE IV
     Route: 042
     Dates: start: 20100318

REACTIONS (3)
  - DYSPNOEA [None]
  - ERYTHEMA [None]
  - THROAT TIGHTNESS [None]
